FAERS Safety Report 10177903 (Version 2)
Quarter: 2014Q2

REPORT INFORMATION
  Report Type: Spontaneous
  Country: US (occurrence: US)
  Receive Date: 20140516
  Receipt Date: 20140516
  Transmission Date: 20141212
  Serious: Yes (Hospitalization)
  Sender: FDA-Public Use
  Company Number: US-TAKEDA-2014TUS002351

PATIENT
  Sex: Female

DRUGS (2)
  1. BRINTELLIX [Suspect]
     Indication: MAJOR DEPRESSION
     Dosage: 10 MG, QD
     Route: 048
  2. SSRI [Concomitant]
     Dosage: UNK
     Route: 048

REACTIONS (1)
  - Diplopia [Unknown]
